FAERS Safety Report 8607962-7 (Version None)
Quarter: 2012Q3

REPORT INFORMATION
  Report Type: 
  Country: None (occurrence: None)
  Receive Date: 20120806
  Receipt Date: 20120725
  Transmission Date: 20120928
  Serious: Yes (Other)
  Sender: FDA-Public Use
  Company Number: ACO_31262_2012

PATIENT
  Age: 38 Year
  Sex: Female
  Weight: 65.8 kg

DRUGS (7)
  1. CANNABIS (CANNIBIS SATIVA) [Concomitant]
  2. AMPYRA [Suspect]
     Indication: GAIT DISTURBANCE
     Dosage: 10 MG, BID, ORAL
     Route: 048
     Dates: start: 20120101
  3. BACLOFEN [Concomitant]
  4. TRAMADOL HCL [Concomitant]
  5. OXYCODONE HCL [Concomitant]
  6. VALIUM [Concomitant]
  7. LEXAPRO 9ESCITALOPRAM OXALATE) [Concomitant]

REACTIONS (1)
  - GRAND MAL CONVULSION [None]
